FAERS Safety Report 25157815 (Version 1)
Quarter: 2025Q2

REPORT INFORMATION
  Report Type: Report from Study
  Country: CA (occurrence: CA)
  Receive Date: 20250403
  Receipt Date: 20250403
  Transmission Date: 20250716
  Serious: Yes (Other)
  Sender: ABBVIE
  Company Number: CA-ABBVIE-6204232

PATIENT
  Age: 54 Year
  Sex: Male

DRUGS (1)
  1. SKYRIZI [Suspect]
     Active Substance: RISANKIZUMAB-RZAA
     Indication: Crohn^s disease
     Route: 042
     Dates: start: 20250226

REACTIONS (6)
  - Unresponsive to stimuli [Unknown]
  - Dizziness [Unknown]
  - Hypoaesthesia [Unknown]
  - Disorientation [Unknown]
  - Concussion [Recovering/Resolving]
  - Post-traumatic neck syndrome [Recovering/Resolving]

NARRATIVE: CASE EVENT DATE: 20250301
